FAERS Safety Report 9739706 (Version 2)
Quarter: 2013Q4

REPORT INFORMATION
  Report Type: Spontaneous
  Country: US (occurrence: US)
  Receive Date: 20131209
  Receipt Date: 20131209
  Transmission Date: 20140711
  Serious: Yes (Other)
  Sender: FDA-Public Use
  Company Number: US-ASTELLAS-2013US010170

PATIENT
  Age: 79 Year
  Sex: Male

DRUGS (3)
  1. XTANDI [Suspect]
     Indication: PROSTATE CANCER
     Dosage: 160 MG, UID/QD
     Route: 048
     Dates: start: 20130426, end: 20130820
  2. ADVIL                              /00044201/ [Concomitant]
     Indication: PAIN
     Dosage: 200-400MG ONCE DAILY AS NEEDED
     Route: 048
     Dates: start: 20130426, end: 20130910
  3. PRILOSEC                           /00661201/ [Concomitant]
     Indication: DYSPEPSIA
     Dosage: 20 MG, ONCE DAILY AS NEEDED
     Route: 048
     Dates: start: 20130426, end: 20130910

REACTIONS (2)
  - Drug ineffective [Unknown]
  - Malignant neoplasm progression [Unknown]
